FAERS Safety Report 11792821 (Version 7)
Quarter: 2018Q3

REPORT INFORMATION
  Report Type: Spontaneous
  Country: US (occurrence: US)
  Receive Date: 20151202
  Receipt Date: 20180924
  Transmission Date: 20181010
  Serious: Yes (Hospitalization, Other)
  Sender: FDA-Public Use
  Company Number: US-DSJP-DSU-2015-118909

PATIENT

DRUGS (3)
  1. BENICAR [Suspect]
     Active Substance: OLMESARTAN MEDOXOMIL
     Dosage: 5 MG, QD
     Route: 048
     Dates: start: 200904, end: 201403
  2. BENICAR [Suspect]
     Active Substance: OLMESARTAN MEDOXOMIL
     Indication: HYPERTENSION
     Dosage: 20 MG, QD
     Dates: start: 20060801
  3. BENICAR [Suspect]
     Active Substance: OLMESARTAN MEDOXOMIL
     Dosage: 10 MG, QD
     Route: 048
     Dates: start: 20140324

REACTIONS (9)
  - Anal fistula [Unknown]
  - Haemorrhoids [Recovered/Resolved]
  - Acute kidney injury [Unknown]
  - Hiatus hernia [Not Recovered/Not Resolved]
  - Diverticulum intestinal [Not Recovered/Not Resolved]
  - Gastric ulcer [Unknown]
  - Diverticulitis [Unknown]
  - Sprue-like enteropathy [Recovering/Resolving]
  - Large intestine polyp [Not Recovered/Not Resolved]

NARRATIVE: CASE EVENT DATE: 20090101
